FAERS Safety Report 17207685 (Version 1)
Quarter: 2019Q4

REPORT INFORMATION
  Report Type: Report from Study
  Country: KR (occurrence: KR)
  Receive Date: 20191227
  Receipt Date: 20191227
  Transmission Date: 20200122
  Serious: Yes (Hospitalization)
  Sender: FDA-Public Use
  Company Number: KR-JNJFOC-20191225499

PATIENT
  Age: 74 Year
  Sex: Male

DRUGS (23)
  1. PANORIN [Concomitant]
     Indication: OSTEOPOROSIS PROPHYLAXIS
     Route: 042
     Dates: start: 20191125
  2. DOPAMINE HCL [Concomitant]
     Active Substance: DOPAMINE HYDROCHLORIDE
     Indication: HYPOTENSION
     Dosage: PREMIX - 800 MG/250 ML
     Route: 042
     Dates: start: 20191126, end: 20191205
  3. VACROVIR                           /00587301/ [Concomitant]
     Indication: PROPHYLAXIS
     Route: 048
     Dates: start: 20191125
  4. MELPHALAN. [Concomitant]
     Active Substance: MELPHALAN
     Indication: PLASMA CELL MYELOMA
     Route: 048
     Dates: start: 20191125, end: 20191128
  5. K-CONTIN [Concomitant]
     Indication: HYPOKALAEMIA
     Route: 048
     Dates: start: 20191201, end: 20191201
  6. MAGNESIUM SULFATE. [Concomitant]
     Active Substance: MAGNESIUM SULFATE
     Indication: HYPOMAGNESAEMIA
     Route: 042
     Dates: start: 20191209, end: 20191211
  7. LACTULOSE. [Concomitant]
     Active Substance: LACTULOSE
     Indication: CONSTIPATION
     Route: 048
     Dates: start: 20191216, end: 20191216
  8. BORTEZOMIB INJECTION [Concomitant]
     Active Substance: BORTEZOMIB
     Indication: PLASMA CELL MYELOMA
     Route: 058
     Dates: start: 20191125, end: 20191205
  9. DARATUMUMAB [Suspect]
     Active Substance: DARATUMUMAB
     Indication: PLASMA CELL MYELOMA
     Route: 042
     Dates: start: 20191125, end: 20191209
  10. REBAMIPIDE [Concomitant]
     Active Substance: REBAMIPIDE
     Indication: GASTRITIS
     Route: 048
     Dates: start: 20191108
  11. PHOSTEN [Concomitant]
     Indication: MINERAL SUPPLEMENTATION
     Route: 042
     Dates: start: 20191205, end: 20191205
  12. MEGESTROL ACETATE. [Concomitant]
     Active Substance: MEGESTROL ACETATE
     Indication: GASTRITIS
     Route: 048
     Dates: start: 20191210, end: 20191210
  13. PREDNISOLONE. [Concomitant]
     Active Substance: PREDNISOLONE
     Indication: PLASMA CELL MYELOMA
     Route: 048
     Dates: start: 20191126, end: 20191128
  14. PANTOPRAZOLE [Concomitant]
     Active Substance: PANTOPRAZOLE
     Indication: GASTRITIS
     Route: 048
     Dates: start: 20191108
  15. FLUCONAZOLE. [Concomitant]
     Active Substance: FLUCONAZOLE
     Indication: INFECTION PROPHYLAXIS
     Route: 048
     Dates: start: 20191125
  16. MIRTAZAPINE. [Concomitant]
     Active Substance: MIRTAZAPINE
     Indication: ANXIETY
     Route: 048
     Dates: start: 20191107
  17. CALCIUM CARBONATE W/ERGOCALCIFEROL [Concomitant]
     Indication: HYPOCALCAEMIA
     Dosage: 2 TABLETS
     Route: 048
     Dates: start: 20191205
  18. ONEALFA [Concomitant]
     Active Substance: ALFACALCIDOL
     Indication: HYPOCALCAEMIA
     Route: 048
     Dates: start: 20191205
  19. TAMIPOOL [Concomitant]
     Active Substance: VITAMINS
     Indication: VITAMIN SUPPLEMENTATION
     Dosage: 1 VIAL
     Route: 042
     Dates: start: 20191202
  20. SEPTRIN [Concomitant]
     Active Substance: SULFAMETHOXAZOLE\TRIMETHOPRIM
     Indication: INFECTION PROPHYLAXIS
     Dosage: 1 TABLET - 400/80 MG
     Route: 048
     Dates: start: 20191125, end: 20191216
  21. PLOKON [Concomitant]
     Indication: PROPHYLAXIS
     Route: 042
     Dates: start: 20191209, end: 20191209
  22. PLOKON [Concomitant]
     Route: 042
     Dates: start: 20191213, end: 20191213
  23. DEXTROSE. [Concomitant]
     Active Substance: DEXTROSE
     Indication: FLUID REPLACEMENT
     Route: 042
     Dates: start: 20191202, end: 201912

REACTIONS (2)
  - Pneumonitis [Recovering/Resolving]
  - Hypotension [Not Recovered/Not Resolved]

NARRATIVE: CASE EVENT DATE: 20191210
